FAERS Safety Report 6132698-4 (Version None)
Quarter: 2009Q1

REPORT INFORMATION
  Report Type: 
  Country: None (occurrence: None)
  Receive Date: 20090326
  Receipt Date: 20090317
  Transmission Date: 20090719
  Serious: Yes (Life-Threatening, Hospitalization)
  Sender: FDA-Public Use
  Company Number: GB-RANBAXY-2009RR-22267

PATIENT
  Age: 70 Year
  Sex: Female

DRUGS (5)
  1. CEFALEXIN [Suspect]
     Indication: LOWER RESPIRATORY TRACT INFECTION
     Dosage: 500 MG, TID
     Route: 048
     Dates: start: 20090127
  2. WARFARIN SODIUM [Suspect]
     Indication: ATRIAL FIBRILLATION
     Dosage: UNK
     Route: 048
     Dates: end: 20090208
  3. ATENOLOL [Concomitant]
     Dosage: 25 MG, BID
     Route: 048
  4. CANDESARTAN [Concomitant]
     Dosage: 2 MG, QID
     Route: 048
     Dates: end: 20090208
  5. FLECAINIDE ACETATE [Concomitant]
     Dosage: 50 MG, BID
     Route: 048

REACTIONS (5)
  - CONJUNCTIVAL HAEMORRHAGE [None]
  - DRUG INTERACTION [None]
  - GINGIVAL BLEEDING [None]
  - HAEMATURIA [None]
  - INTERNATIONAL NORMALISED RATIO INCREASED [None]
